FAERS Safety Report 8062745-4 (Version None)
Quarter: 2012Q1

REPORT INFORMATION
  Report Type: 
  Country: None (occurrence: None)
  Receive Date: 20120123
  Receipt Date: 20120111
  Transmission Date: 20120608
  Serious: Yes (Hospitalization, Other)
  Sender: FDA-Public Use
  Company Number: JP-PFIZER INC-2011316236

PATIENT
  Age: 33 Year
  Sex: Female

DRUGS (7)
  1. OLMESARTAN MEDOXOMIL [Suspect]
     Indication: HYPERTENSION
     Dosage: UNK
     Route: 048
     Dates: end: 20110418
  2. LASIX [Suspect]
     Indication: HYPERTENSION
     Dosage: UNK
     Dates: end: 20110418
  3. RASILEZ [Suspect]
     Indication: HYPERTENSION
     Dosage: UNK
     Dates: end: 20110418
  4. AMLODIPINE [Suspect]
     Indication: HYPERTENSION
     Dosage: UNK
     Route: 048
     Dates: end: 20110418
  5. KERLONE [Suspect]
     Indication: HYPERTENSION
     Dosage: UNK
     Dates: end: 20110418
  6. FAMOTIDINE [Suspect]
     Indication: GASTRITIS PROPHYLAXIS
     Dosage: UNK
     Dates: end: 20110418
  7. TRICHLORMETHIAZIDE [Suspect]
     Indication: HYPERTENSION
     Dosage: UNK
     Dates: end: 20110418

REACTIONS (3)
  - MALAISE [None]
  - DRUG ERUPTION [None]
  - RENAL FAILURE ACUTE [None]
